FAERS Safety Report 25478991 (Version 2)
Quarter: 2025Q2

REPORT INFORMATION
  Report Type: Spontaneous
  Country: CH (occurrence: CH)
  Receive Date: 20250625
  Receipt Date: 20250627
  Transmission Date: 20250716
  Serious: No
  Sender: EMD SERONO INC
  Company Number: CH-Merck Healthcare KGaA-2025030776

PATIENT
  Sex: Male

DRUGS (1)
  1. MAVENCLAD [Suspect]
     Active Substance: CLADRIBINE
     Indication: Multiple sclerosis

REACTIONS (1)
  - Lymphopenia [Unknown]
